FAERS Safety Report 8894842 (Version 3)
Quarter: 2012Q4

REPORT INFORMATION
  Report Type: Report from Study
  Country: DE (occurrence: DE)
  Receive Date: 20121108
  Receipt Date: 20121206
  Transmission Date: 20130627
  Serious: Yes (Other)
  Sender: FDA-Public Use
  Company Number: DE-SANOFI-AVENTIS-2012SA078191

PATIENT
  Age: 71 Year
  Sex: Male
  Weight: 89 kg

DRUGS (10)
  1. CABAZITAXEL [Suspect]
     Indication: PROSTATE CANCER METASTATIC
     Route: 042
     Dates: start: 20120322, end: 20120322
  2. CABAZITAXEL [Suspect]
     Indication: PROSTATE CANCER METASTATIC
     Route: 042
     Dates: start: 20121017, end: 20121017
  3. PREDNISOLONE [Suspect]
     Indication: PROSTATE CANCER METASTATIC
     Route: 042
     Dates: start: 20120322, end: 20121022
  4. ALLOPURINOL [Concomitant]
     Indication: PROPHYLAXIS
     Route: 048
     Dates: start: 1980
  5. PVP JOD [Concomitant]
     Indication: PROPHYLAXIS
     Route: 048
     Dates: start: 1980
  6. ACETYLSALICYLIC ACID [Concomitant]
     Indication: PROPHYLAXIS
     Route: 048
     Dates: start: 20120229
  7. SIMVASTATIN [Concomitant]
     Indication: PROPHYLAXIS
     Route: 048
     Dates: start: 20120229
  8. CALCIUM GLUBIONATE [Concomitant]
     Indication: PROPHYLAXIS
     Route: 048
     Dates: start: 20120229
  9. MAGNESIUM HYDROGEN ASPARTATE [Concomitant]
     Indication: PROPHYLAXIS
     Route: 048
     Dates: start: 20120726
  10. DICLOFENAC RESINATE [Concomitant]
     Indication: PROPHYLAXIS
     Route: 048
     Dates: start: 20121016

REACTIONS (1)
  - Mechanical ileus [Recovered/Resolved]
